FAERS Safety Report 8418193-8 (Version None)
Quarter: 2012Q2

REPORT INFORMATION
  Report Type: 
  Country: None (occurrence: None)
  Receive Date: 20120323
  Receipt Date: 20110218
  Transmission Date: 20120825
  Serious: Yes (Other)
  Sender: FDA-Public Use
  Company Number: 163-21880-11022871

PATIENT
  Age: 59 Year
  Sex: Male

DRUGS (16)
  1. IMODIUM A-D [Concomitant]
  2. LYRICA [Concomitant]
  3. POTASSIUM CHLORIDE [Concomitant]
  4. OMEPRAZOLE [Concomitant]
  5. AREDIA [Concomitant]
  6. TOPROL-XL [Concomitant]
  7. DEXAMETHASONE [Concomitant]
  8. AMLODIPINE [Concomitant]
  9. LISINOPRIL [Concomitant]
  10. VITAMIN B12 [Concomitant]
  11. SIMVASTATIN [Concomitant]
  12. REVLIMID [Suspect]
     Indication: MULTIPLE MYELOMA
     Dosage: 25 MG, DAILY 21 DAYS ON, 7 OFF, PO ; 25 MG, DAILY 28 DAYS ON, 14 OFF, PO
     Route: 048
     Dates: start: 20081101
  13. VITAMIN D [Concomitant]
  14. LEVOTHYROXINE SODIUM [Concomitant]
  15. ASPIRIN [Concomitant]
  16. VELCADE [Concomitant]

REACTIONS (1)
  - THROMBOCYTOPENIA [None]
